FAERS Safety Report 10191431 (Version 1)
Quarter: 2014Q2

REPORT INFORMATION
  Report Type: Spontaneous
  Country: US (occurrence: US)
  Receive Date: 20140523
  Receipt Date: 20140523
  Transmission Date: 20141212
  Serious: No
  Sender: FDA-Public Use
  Company Number: US-PFIZER INC-2014138305

PATIENT
  Age: 51 Year
  Sex: Female
  Weight: 46.7 kg

DRUGS (2)
  1. LEVOXYL [Suspect]
     Dosage: 50 UG, UNK
  2. LEVOTHYROXINE SODIUM [Suspect]
     Dosage: UNK

REACTIONS (1)
  - Abdominal discomfort [Unknown]
